FAERS Safety Report 10482054 (Version 2)
Quarter: 2014Q3

REPORT INFORMATION
  Report Type: Report from Study
  Country: None (occurrence: CN)
  Receive Date: 20140929
  Receipt Date: 20140929
  Transmission Date: 20150326
  Serious: Yes (Hospitalization)
  Sender: FDA-Public Use
  Company Number: CN-CELGENE-035-AB007-14090961

PATIENT
  Age: 49 Year
  Sex: Male
  Weight: 78 kg

DRUGS (10)
  1. GEMCITABINE [Suspect]
     Active Substance: GEMCITABINE\GEMCITABINE HYDROCHLORIDE
     Route: 041
     Dates: start: 20140912
  2. G-CSF [Concomitant]
     Active Substance: FILGRASTIM
     Route: 030
     Dates: start: 20140827, end: 20140831
  3. RAMOSETRON [Concomitant]
     Active Substance: RAMOSETRON HYDROCHLORIDE
     Route: 041
     Dates: start: 20140828, end: 20140904
  4. RAMOSETRON [Concomitant]
     Active Substance: RAMOSETRON HYDROCHLORIDE
     Indication: PROPHYLAXIS OF NAUSEA AND VOMITING
     Route: 041
     Dates: start: 20140822, end: 20140823
  5. G-CSF [Concomitant]
     Active Substance: FILGRASTIM
     Indication: HAEMOSTASIS
     Dosage: 4 GRAM
     Route: 030
     Dates: start: 20140903, end: 20140904
  6. G-CSF [Concomitant]
     Active Substance: FILGRASTIM
     Route: 030
     Dates: start: 20140909
  7. AMOXICILLIN. [Concomitant]
     Active Substance: AMOXICILLIN
     Indication: PROPHYLAXIS
     Dosage: 1.5 MILLIGRAM
     Route: 048
     Dates: start: 20140827
  8. ABRAXANE [Suspect]
     Active Substance: PACLITAXEL
     Indication: PANCREATIC CARCINOMA METASTATIC
     Route: 041
     Dates: start: 20140822, end: 20140904
  9. GEMCITABINE [Suspect]
     Active Substance: GEMCITABINE\GEMCITABINE HYDROCHLORIDE
     Indication: PANCREATIC CARCINOMA METASTATIC
     Route: 041
     Dates: start: 20140822, end: 20140904
  10. ABRAXANE [Suspect]
     Active Substance: PACLITAXEL
     Route: 041
     Dates: start: 20140912

REACTIONS (1)
  - Upper gastrointestinal haemorrhage [Recovered/Resolved]

NARRATIVE: CASE EVENT DATE: 20140903
